FAERS Safety Report 9092777 (Version 1)
Quarter: 2013Q1

REPORT INFORMATION
  Report Type: Report from Study
  Country: US (occurrence: US)
  Receive Date: 20130131
  Receipt Date: 20130131
  Transmission Date: 20140127
  Serious: No
  Sender: FDA-Public Use
  Company Number: US-ABBOTT-12P-163-1004342-00

PATIENT
  Age: 29 Year
  Sex: Female

DRUGS (4)
  1. HUMIRA [Suspect]
     Indication: PSORIATIC ARTHROPATHY
  2. HUMIRA [Suspect]
     Dates: start: 20120831
  3. MELOXICAM [Concomitant]
     Indication: INFLAMMATION
  4. TRAZODONE [Concomitant]
     Indication: INSOMNIA
     Dosage: AT NIGHT

REACTIONS (4)
  - Psoriatic arthropathy [Unknown]
  - Injection site pain [Unknown]
  - Pain [Unknown]
  - Inflammation [Unknown]
